FAERS Safety Report 11152101 (Version 1)
Quarter: 2015Q2

REPORT INFORMATION
  Report Type: Spontaneous
  Country: US (occurrence: None)
  Receive Date: 20150529
  Receipt Date: 20150529
  Transmission Date: 20150821
  Serious: Yes (Hospitalization)
  Sender: FDA-Public Use
  Company Number: None

PATIENT
  Age: 68 Year
  Sex: Female
  Weight: 86 kg

DRUGS (1)
  1. CYTARABINE. [Suspect]
     Active Substance: CYTARABINE
     Dates: end: 20150509

REACTIONS (5)
  - Clostridium difficile infection [None]
  - Pancytopenia [None]
  - Dehydration [None]
  - Colitis [None]
  - Asthenia [None]

NARRATIVE: CASE EVENT DATE: 20150516
